FAERS Safety Report 7211285-0 (Version None)
Quarter: 2011Q1

REPORT INFORMATION
  Report Type: 
  Country: None (occurrence: None)
  Receive Date: 20110105
  Receipt Date: 20101230
  Transmission Date: 20110831
  Serious: Yes (Hospitalization)
  Sender: FDA-Public Use
  Company Number: CO-GENZYME-POMP-1001270

PATIENT
  Sex: Male
  Weight: 75 kg

DRUGS (1)
  1. MYOZYME [Suspect]
     Indication: GLYCOGEN STORAGE DISEASE TYPE II
     Dosage: 40 MG/KG, Q15D
     Route: 042
     Dates: start: 20100527

REACTIONS (1)
  - RESPIRATORY TRACT CONGESTION [None]
